FAERS Safety Report 17272519 (Version 2)
Quarter: 2020Q1

REPORT INFORMATION
  Report Type: Spontaneous
  Country: CH (occurrence: CH)
  Receive Date: 20200115
  Receipt Date: 20200130
  Transmission Date: 20200409
  Serious: Yes (Hospitalization, Other)
  Sender: FDA-Public Use
  Company Number: CH-AMGEN-CHESP2020004472

PATIENT
  Age: 54 Year
  Sex: Female
  Weight: 74.5 kg

DRUGS (10)
  1. LAMICTAL [Concomitant]
     Active Substance: LAMOTRIGINE
     Dosage: 100 MILLIGRAM, 1 IN THE MORNING AND 200 MG, 1 IN THE EVENING
  2. BELOC ZOK [Concomitant]
     Active Substance: METOPROLOL SUCCINATE
     Dosage: 50 (1/2 IN THE MORNING, AND 1/2 IN THE EVENING)
  3. REPATHA [Suspect]
     Active Substance: EVOLOCUMAB
     Indication: PRODUCT USED FOR UNKNOWN INDICATION
     Dosage: UNK, IN ABDOMINAL
     Route: 065
     Dates: start: 20200108
  4. VOLTAREN RAPID [Concomitant]
     Active Substance: DICLOFENAC POTASSIUM
     Dosage: 50 MILLIGRAM, QD
     Route: 054
  5. JANUVIA [Concomitant]
     Active Substance: SITAGLIPTIN PHOSPHATE
     Dosage: 100 UNK, QD (IN THE MORNING)
  6. EFEXOR [Concomitant]
     Active Substance: VENLAFAXINE HYDROCHLORIDE
     Dosage: 75 MILLIGRAM, QD (IN THE MORNING)
  7. INEGY [Concomitant]
     Active Substance: EZETIMIBE\SIMVASTATIN
     Dosage: 10/40, QD (IN THE EVENING)
  8. AGOPTON [Concomitant]
     Active Substance: LANSOPRAZOLE
     Dosage: 30 MILLIGRAM, QD (IN THE MORNING)
  9. ASPIRIN CARDIO [Concomitant]
     Active Substance: ASPIRIN
     Dosage: 100 MILLIGRAM, QD (IN MORNING)
  10. FAROS [CRATAEGUS LAEVIGATA EXTRACT] [Concomitant]
     Dosage: 300 UNK, BID (1 IN THE MORNING AND 1 IN THE EVENING)

REACTIONS (1)
  - Hypersensitivity [Unknown]

NARRATIVE: CASE EVENT DATE: 20200108
